FAERS Safety Report 8889670 (Version 2)
Quarter: 2013Q1

REPORT INFORMATION
  Report Type: Spontaneous
  Country: US (occurrence: US)
  Receive Date: 20121107
  Receipt Date: 20130104
  Transmission Date: 20140127
  Serious: Yes (Other)
  Sender: FDA-Public Use
  Company Number: US-BIOGENIDEC-2012BI050375

PATIENT
  Age: 43 Year
  Sex: Female

DRUGS (1)
  1. TYSABRI [Suspect]
     Indication: MULTIPLE SCLEROSIS
     Route: 042
     Dates: start: 20120111

REACTIONS (6)
  - Liver injury [Unknown]
  - Dehydration [Not Recovered/Not Resolved]
  - Malnutrition [Not Recovered/Not Resolved]
  - Vomiting [Unknown]
  - Iron deficiency [Not Recovered/Not Resolved]
  - Coeliac disease [Not Recovered/Not Resolved]
